FAERS Safety Report 6271888-7 (Version None)
Quarter: 2009Q3

REPORT INFORMATION
  Report Type: 
  Country: None (occurrence: None)
  Receive Date: 20090717
  Receipt Date: 20090707
  Transmission Date: 20100115
  Serious: Yes (Hospitalization)
  Sender: FDA-Public Use
  Company Number: PHHY2009FR28444

PATIENT
  Sex: Female

DRUGS (2)
  1. MYCOPHENOLIC ACID [Suspect]
     Dosage: 360 MG, BID
     Route: 048
     Dates: start: 20060307
  2. PROGRAF [Suspect]
     Dosage: 1.5 MG, BID
     Route: 048
     Dates: start: 20020919

REACTIONS (9)
  - CHYLURIA [None]
  - COUGH [None]
  - HYPONATRAEMIA [None]
  - LYMPHORRHOEA [None]
  - OVARIAN CYST [None]
  - OVARIAN MASS [None]
  - RENAL FAILURE ACUTE [None]
  - SURGERY [None]
  - WOUND EVISCERATION [None]
